FAERS Safety Report 16226788 (Version 2)
Quarter: 2019Q2

REPORT INFORMATION
  Report Type: Spontaneous
  Country: US (occurrence: US)
  Receive Date: 20190423
  Receipt Date: 20190425
  Transmission Date: 20190711
  Serious: No
  Sender: FDA-Public Use
  Company Number: US-TEVA-2019-US-1032763

PATIENT
  Sex: Female

DRUGS (1)
  1. PERMETHRIN CREAM 5% W/W [Suspect]
     Active Substance: PERMETHRIN
     Indication: ACARODERMATITIS
     Route: 065
     Dates: start: 201810

REACTIONS (1)
  - Drug ineffective [Unknown]
